FAERS Safety Report 12245940 (Version 8)
Quarter: 2016Q3

REPORT INFORMATION
  Report Type: Spontaneous
  Country: US (occurrence: US)
  Receive Date: 20160407
  Receipt Date: 20160928
  Transmission Date: 20161109
  Serious: No
  Sender: FDA-Public Use
  Company Number: US-ACTELION PHARMACEUTICALS US, INC.-A-US2016-133619

PATIENT
  Age: 62 Year
  Sex: Female

DRUGS (10)
  1. TREPROSTINIL DIOLAMIN [Concomitant]
     Active Substance: TREPROSTINIL DIOLAMINE
     Dosage: 3.75 MG, UNK
  2. TREPROSTINIL DIOLAMIN [Concomitant]
     Active Substance: TREPROSTINIL DIOLAMINE
     Dosage: 2.875 MG, UNK
  3. TREPROSTINIL DIOLAMIN [Concomitant]
     Active Substance: TREPROSTINIL DIOLAMINE
     Dosage: UNK
  4. COUMADIN [Concomitant]
     Active Substance: WARFARIN SODIUM
  5. TRACLEER [Suspect]
     Active Substance: BOSENTAN
     Indication: PULMONARY ARTERIAL HYPERTENSION
     Dosage: 125 MG, BID
     Route: 048
     Dates: start: 20160315
  6. SILDENAFIL. [Concomitant]
     Active Substance: SILDENAFIL
  7. CARDIZEM [Concomitant]
     Active Substance: DILTIAZEM HYDROCHLORIDE
  8. TREPROSTINIL DIOLAMIN [Concomitant]
     Active Substance: TREPROSTINIL DIOLAMINE
     Dosage: 2 MG, TID
     Dates: start: 20160326
  9. TYVASO [Concomitant]
     Active Substance: TREPROSTINIL
     Dosage: DECREASING TO 3 BREATHS, QID
     Route: 055
     Dates: start: 20160326
  10. TREPROSTINIL DIOLAMIN [Concomitant]
     Active Substance: TREPROSTINIL DIOLAMINE
     Dosage: 2.5 MG, TID
     Dates: start: 20160331

REACTIONS (10)
  - Pain in jaw [Unknown]
  - Vomiting [Unknown]
  - Pain in extremity [Unknown]
  - Headache [Unknown]
  - Flushing [Unknown]
  - Dyspnoea exertional [Unknown]
  - Asthenia [Unknown]
  - Chills [Unknown]
  - Pain [Unknown]
  - Nausea [Unknown]
